FAERS Safety Report 14934960 (Version 2)
Quarter: 2018Q2

REPORT INFORMATION
  Report Type: Report from Study
  Country: ES (occurrence: ES)
  Receive Date: 20180524
  Receipt Date: 20180529
  Transmission Date: 20180711
  Serious: Yes (Hospitalization)
  Sender: FDA-Public Use
  Company Number: ES-PFIZER INC-2018207718

PATIENT
  Age: 30 Year
  Sex: Female

DRUGS (27)
  1. AFLIBERCEPT [Suspect]
     Active Substance: AFLIBERCEPT
     Dosage: 154 MG, CYCLIC
     Route: 041
     Dates: start: 20141124, end: 20141124
  2. LEUCOVORIN /00566701/ [Suspect]
     Active Substance: LEUCOVORIN
     Dosage: 419 MG, CYCLIC
     Route: 041
     Dates: start: 20141124, end: 20141124
  3. FORTASEC /00384301/ [Concomitant]
     Dosage: UNK
     Dates: start: 20140529, end: 20140530
  4. PRIMPERAN [Concomitant]
     Active Substance: METOCLOPRAMIDE HYDROCHLORIDE
     Dosage: UNK
     Dates: start: 20141124
  5. LEVOFLOXACIN. [Concomitant]
     Active Substance: LEVOFLOXACIN
     Dosage: UNK
  6. 5-FU /00098801/ [Suspect]
     Active Substance: FLUOROURACIL
     Dosage: 2512 MG, CYCLIC
     Route: 041
     Dates: start: 20141124, end: 20141124
  7. PARACETAMOL [Concomitant]
     Active Substance: ACETAMINOPHEN
     Dosage: UNK
     Route: 065
     Dates: start: 20141203, end: 20141206
  8. EMEND [Concomitant]
     Active Substance: APREPITANT
     Dosage: UNK
     Dates: start: 20140826
  9. AFLIBERCEPT [Suspect]
     Active Substance: AFLIBERCEPT
     Indication: COLORECTAL CANCER METASTATIC
     Dosage: 192 MG, CYCLIC
     Route: 041
     Dates: start: 20140526, end: 20140526
  10. LEUCOVORIN /00566701/ [Suspect]
     Active Substance: LEUCOVORIN
     Indication: COLORECTAL CANCER METASTATIC
     Dosage: 598 MG, CYCLIC
     Route: 041
     Dates: start: 20140526, end: 20140526
  11. LORAZEPAM. [Concomitant]
     Active Substance: LORAZEPAM
     Dosage: UNK
     Dates: start: 20140702
  12. PECFENT [Concomitant]
     Active Substance: FENTANYL CITRATE
     Dosage: UNK
     Dates: start: 20140618
  13. DUROGESIC [Concomitant]
     Active Substance: FENTANYL
     Indication: PROPHYLAXIS
     Dosage: UNK
     Dates: start: 20140618
  14. IRINOTECAN HCL [Suspect]
     Active Substance: IRINOTECAN HYDROCHLORIDE
     Dosage: 188 MG, CYCLIC
     Route: 041
     Dates: start: 20141124, end: 20141124
  15. 5-FU /00098801/ [Suspect]
     Active Substance: FLUOROURACIL
     Indication: COLORECTAL CANCER METASTATIC
     Dosage: 3588 MG, CYCLIC
     Route: 041
     Dates: start: 20140526, end: 20140526
  16. ONDANSETRON [Concomitant]
     Active Substance: ONDANSETRON
     Dosage: UNK
     Dates: start: 20141124
  17. FENTANYL. [Concomitant]
     Active Substance: FENTANYL
     Dosage: UNK
     Dates: start: 20141203, end: 20141206
  18. LEVOFLOXACIN. [Concomitant]
     Active Substance: LEVOFLOXACIN
     Dosage: UNK
     Route: 065
     Dates: start: 20141203, end: 20141206
  19. DEXAMETASON /00016001/ [Concomitant]
     Active Substance: DEXAMETHASONE
     Dosage: UNK
     Route: 065
     Dates: start: 20141203, end: 20141206
  20. LYRICA [Concomitant]
     Active Substance: PREGABALIN
     Dosage: UNK
     Dates: start: 20141124
  21. 5-FU /00098801/ [Suspect]
     Active Substance: FLUOROURACIL
     Dosage: 598 MG, CYCLIC
     Route: 040
     Dates: start: 20140526, end: 20140526
  22. FORTASEC /00384301/ [Concomitant]
     Dosage: UNK
     Dates: start: 20140609
  23. IRINOTECAN HCL [Suspect]
     Active Substance: IRINOTECAN HYDROCHLORIDE
     Indication: COLORECTAL CANCER METASTATIC
     Dosage: 269 MG, CYCLIC
     Route: 041
     Dates: start: 20140526, end: 20140526
  24. 5-FU /00098801/ [Suspect]
     Active Substance: FLUOROURACIL
     Dosage: 419 MG, CYCLIC
     Route: 040
     Dates: start: 20141124, end: 20141124
  25. NOLOTIL /00473101/ [Concomitant]
     Active Substance: METAMIZOLE\PROPOXYPHENE
     Indication: PROPHYLAXIS
     Dosage: UNK
     Dates: start: 20140609
  26. SERTRALINE [Concomitant]
     Active Substance: SERTRALINE HYDROCHLORIDE
     Dosage: UNK
     Route: 065
     Dates: start: 20141203, end: 20141206
  27. FENTANYL. [Concomitant]
     Active Substance: FENTANYL
     Dosage: UNK
     Route: 065
     Dates: start: 20141020

REACTIONS (3)
  - Vomiting [Recovered/Resolved]
  - Anxiety [Recovering/Resolving]
  - Drug intolerance [Recovering/Resolving]

NARRATIVE: CASE EVENT DATE: 20141124
